FAERS Safety Report 6753832-9 (Version None)
Quarter: 2010Q2

REPORT INFORMATION
  Report Type: 
  Country: None (occurrence: None)
  Receive Date: 20100520
  Receipt Date: 20090429
  Transmission Date: 20101027
  Serious: Yes (Other)
  Sender: FDA-Public Use
  Company Number: 2009209288

PATIENT
  Age: 53 Year
  Sex: Female
  Weight: 63.5 kg

DRUGS (4)
  1. PROVERA [Suspect]
     Indication: MENOPAUSE
     Dates: start: 19940101
  2. PREMARIN [Suspect]
     Indication: MENOPAUSE
     Dates: start: 19940101, end: 19950101
  3. PREMPRO(ESTROGENS CONJUGATED, MEDROXYPROCESTERONE ACETATE) [Suspect]
     Indication: MENOPAUSE
     Dates: start: 19960101, end: 20010101
  4. PREMETRIUM (PROGESTERONE) [Suspect]
     Indication: MENOPAUSE
     Dates: start: 20010101

REACTIONS (1)
  - BREAST CANCER [None]
